FAERS Safety Report 8017756-1 (Version None)
Quarter: 2012Q1

REPORT INFORMATION
  Report Type: 
  Country: None (occurrence: None)
  Receive Date: 20120103
  Receipt Date: 20111227
  Transmission Date: 20120608
  Serious: No
  Sender: FDA-Public Use
  Company Number: US-PFIZER INC-2011038780

PATIENT
  Sex: Male
  Weight: 104.31 kg

DRUGS (8)
  1. EFFEXOR XR [Suspect]
     Dosage: 75MG/DAY
  2. ZYPREXA [Concomitant]
     Indication: PANIC DISORDER
     Dosage: 5 MG, 1X/DAY
  3. EFFEXOR [Suspect]
     Dosage: UNK
  4. EFFEXOR XR [Suspect]
     Dosage: 225 MG/DAY
     Route: 048
     Dates: start: 20080301, end: 20110701
  5. ALPRAZOLAM [Suspect]
     Indication: HYPERTENSION
     Dosage: 0.5 MG, 3X/DAY
  6. EFFEXOR XR [Suspect]
     Indication: DEPRESSION
     Dosage: 150MG/DAY
  7. ALPRAZOLAM [Suspect]
     Indication: PANIC DISORDER
     Dosage: 0.25 MG, 3X/DAY
  8. EFFEXOR XR [Suspect]
     Indication: PANIC DISORDER
     Dosage: 225 MG, 1X/DAY
     Route: 048
     Dates: start: 20060101

REACTIONS (7)
  - BLOOD TRIGLYCERIDES DECREASED [None]
  - ABNORMAL BEHAVIOUR [None]
  - HOT FLUSH [None]
  - GAIT DISTURBANCE [None]
  - GASTROINTESTINAL VIRAL INFECTION [None]
  - HYPERHIDROSIS [None]
  - ERECTILE DYSFUNCTION [None]
